FAERS Safety Report 24206584 (Version 1)
Quarter: 2024Q3

REPORT INFORMATION
  Report Type: Report from Study
  Country: KR (occurrence: KR)
  Receive Date: 20240813
  Receipt Date: 20240813
  Transmission Date: 20241017
  Serious: Yes (Other)
  Sender: JAZZ
  Company Number: KR-JAZZ PHARMACEUTICALS-2024-KR-005968

PATIENT
  Age: 69 Year
  Sex: Male
  Weight: 62.1 kg

DRUGS (17)
  1. VYXEOS [Suspect]
     Active Substance: CYTARABINE\DAUNORUBICIN
     Indication: Acute myeloid leukaemia
     Dosage: (DAUNORUBICIN 44MG/M2, CYTARABINE 100MG/M2) 1TIME/ON DAY1 (21-NOV-2023) , DAY3 (23-NOV-2023)
     Route: 042
     Dates: start: 20231121, end: 20231123
  2. ZOYLEX [ACICLOVIR] [Concomitant]
     Indication: Prophylaxis
     Dosage: 400 MILLIGRAM, QD
     Route: 048
     Dates: start: 20231128
  3. PYRIDOXINE HYDROCHLORIDE [Concomitant]
     Active Substance: PYRIDOXINE HYDROCHLORIDE
     Indication: Prophylaxis
     Dosage: 100 MILLIGRAM, QD
     Route: 048
     Dates: start: 20231121
  4. CITOPCIN [CIPROFLOXACIN LACTATE] [Concomitant]
     Indication: Prophylaxis
     Dosage: 250 MILLIGRAM, BID
     Route: 048
     Dates: start: 20231121, end: 20231124
  5. KYTRIL [Concomitant]
     Active Substance: GRANISETRON HYDROCHLORIDE
     Indication: Prophylaxis
     Dosage: 3 MILLIGRAM, QD
     Route: 042
     Dates: start: 20231121, end: 20231123
  6. MACPERAN [METOCLOPRAMIDE] [Concomitant]
     Indication: Prophylaxis
     Dosage: 10 MILLIGRAM, TID
     Route: 042
     Dates: start: 20231121, end: 20231123
  7. SODIUM BICARBONATE [Concomitant]
     Active Substance: SODIUM BICARBONATE
     Indication: Prophylaxis
     Dosage: 2 AMP, QD, 8.4 PERCENT
     Route: 042
     Dates: start: 20231121, end: 20231129
  8. MAGNES [Concomitant]
     Indication: Mineral supplementation
     Dosage: 950 MILLIGRAM, QD
     Route: 048
     Dates: start: 20231126, end: 20231126
  9. MAGNESIUM HYDROXIDE [Concomitant]
     Active Substance: MAGNESIUM HYDROXIDE
     Indication: Prophylaxis
     Dosage: 500 MILLIGRAM,PRN
     Route: 048
     Dates: start: 20231123, end: 20231203
  10. NOXAFIL [Concomitant]
     Active Substance: POSACONAZOLE
     Indication: Prophylaxis
     Dosage: 300 MILLIGRAM, BID
     Route: 048
     Dates: start: 20231121
  11. ACLOVA [ACICLOVIR] [Concomitant]
     Indication: Prophylaxis
     Dosage: 250 MILLIGRAM, TID
     Route: 042
     Dates: start: 20231128, end: 20231204
  12. SULFAMETHOXAZOLE\TRIMETHOPRIM [Concomitant]
     Active Substance: SULFAMETHOXAZOLE\TRIMETHOPRIM
     Indication: Prophylaxis
     Dosage: 480 MILLIGRAM, QD
     Route: 048
     Dates: start: 20231205
  13. BINICAPIN [Concomitant]
     Indication: Hypertension
     Dosage: 10 MILLIGRAM, QD
     Route: 042
     Dates: start: 20231204, end: 20231204
  14. NAFTOPIDIL [Concomitant]
     Active Substance: NAFTOPIDIL
     Indication: Dysuria
     Dosage: 75 MILLIGRAM, QD
     Route: 048
     Dates: start: 2020
  15. TIRAMIDE [Concomitant]
     Indication: Prophylaxis
     Dosage: 1 DOSAGE FORM (TAB), QD
     Route: 048
     Dates: start: 2020
  16. MIRABE SR [Concomitant]
     Indication: Dysuria
     Dosage: 50 MILLIGRAM, QD
     Route: 048
     Dates: start: 2020
  17. HINECHOL [Concomitant]
     Indication: Dysuria
     Dosage: 1 DOSAGE FORM (TAB), QD
     Route: 048
     Dates: start: 2020

REACTIONS (3)
  - Pneumonia [Recovering/Resolving]
  - Urticaria [Recovered/Resolved]
  - Nausea [Recovered/Resolved]

NARRATIVE: CASE EVENT DATE: 20231124
